FAERS Safety Report 9870859 (Version 1)
Quarter: 2014Q1

REPORT INFORMATION
  Report Type: Spontaneous
  Country: JP (occurrence: JP)
  Receive Date: 20140205
  Receipt Date: 20140205
  Transmission Date: 20141002
  Serious: Yes (Death)
  Sender: FDA-Public Use
  Company Number: JP-PFIZER INC-2014027462

PATIENT
  Age: 77 Year
  Sex: Male

DRUGS (3)
  1. METHYLPREDNISOLONE SODIUM SUCCINATE [Suspect]
     Dosage: 1000 MG, DAILY
     Route: 041
     Dates: start: 201107
  2. METHYLPREDNISOLONE SODIUM SUCCINATE [Suspect]
     Dosage: 125 MG, DAILY
     Route: 041
     Dates: start: 201107
  3. RITUXIMAB [Suspect]
     Dosage: 375 MG/M2, WEEKLY
     Route: 058
     Dates: start: 2011, end: 2011

REACTIONS (1)
  - Pneumocystis jirovecii pneumonia [Fatal]
